FAERS Safety Report 4413214-1 (Version None)
Quarter: 2004Q3

REPORT INFORMATION
  Report Type: 
  Country: None (occurrence: None)
  Receive Date: 20040730
  Receipt Date: 20040730
  Transmission Date: 20050211
  Serious: Yes (Hospitalization)
  Sender: FDA-Public Use
  Company Number: None

PATIENT
  Sex: Male
  Weight: 132.4503 kg

DRUGS (2)
  1. DEPO TESTOSTERONE CYPIONATE INJ [Suspect]
     Indication: SELF-MEDICATION
     Dosage: IM ( 1 DOSE)
     Route: 030
     Dates: start: 20040720
  2. DIETARY SUPPLEMENTS [Concomitant]

REACTIONS (4)
  - CELLULITIS [None]
  - PHARMACEUTICAL PRODUCT COMPLAINT [None]
  - POST PROCEDURAL COMPLICATION [None]
  - SELF-MEDICATION [None]
